FAERS Safety Report 9531193 (Version 1)
Quarter: 2013Q2

REPORT INFORMATION
  Report Type: Spontaneous
  Country: US (occurrence: None)
  Receive Date: 20130418
  Receipt Date: 20130418
  Transmission Date: 20140414
  Serious: Yes (Other)
  Sender: FDA-Public Use
  Company Number: 1301USA002506

PATIENT
  Age: 60 Year
  Sex: Female

DRUGS (3)
  1. SINGULAIR (MONTELUKAST SODIUM) TABLET [Suspect]
     Indication: LARYNGEAL DISCOMFORT
     Dosage: 5 MG, 1/D PO, ORAL
     Route: 048
  2. PREZOLON [Suspect]
     Indication: COUGH
     Dosage: 3 MG, D PO, ORAL
     Route: 048
  3. XOZAL [Suspect]
     Dosage: 5 MG, 1/D PO, ORAL
     Route: 048

REACTIONS (4)
  - Pyrexia [None]
  - Dyspnoea [None]
  - Dysphonia [None]
  - Angioedema [None]
